FAERS Safety Report 8449969-9 (Version None)
Quarter: 2012Q2

REPORT INFORMATION
  Report Type: 
  Country: None (occurrence: None)
  Receive Date: 20120614
  Receipt Date: 20120614
  Transmission Date: 20120825
  Serious: No
  Sender: FDA-Public Use
  Company Number: None

PATIENT
  Age: 51 Year
  Sex: Female
  Weight: 99.7913 kg

DRUGS (2)
  1. NEURONTIN [Concomitant]
  2. LYRICA [Suspect]
     Indication: SPINAL CORD COMPRESSION
     Dosage: 100MG, BID, PO
     Route: 048
     Dates: start: 20120224, end: 20120501

REACTIONS (2)
  - GAIT DISTURBANCE [None]
  - BONE PAIN [None]
